FAERS Safety Report 19932772 (Version 1)
Quarter: 2021Q4

REPORT INFORMATION
  Report Type: Spontaneous
  Country: US (occurrence: US)
  Receive Date: 20211007
  Receipt Date: 20211007
  Transmission Date: 20220303
  Serious: No
  Sender: FDA-Public Use
  Company Number: None

PATIENT
  Sex: Female
  Weight: 68.4 kg

DRUGS (1)
  1. CHANTIX [Suspect]
     Active Substance: VARENICLINE TARTRATE
     Indication: Smoking cessation therapy
     Route: 048

REACTIONS (13)
  - Dizziness [None]
  - Loss of consciousness [None]
  - Vomiting [None]
  - Nausea [None]
  - Gastric disorder [None]
  - Dyspnoea [None]
  - Initial insomnia [None]
  - Nightmare [None]
  - Anger [None]
  - Constipation [None]
  - Headache [None]
  - Vision blurred [None]
  - Chest pain [None]
